FAERS Safety Report 4945338-4 (Version None)
Quarter: 2006Q1

REPORT INFORMATION
  Report Type: 
  Country: None (occurrence: None)
  Receive Date: 20060315
  Receipt Date: 20060315
  Transmission Date: 20060701
  Serious: Yes (Hospitalization)
  Sender: FDA-Public Use
  Company Number: None

PATIENT
  Age: 73 Year
  Sex: Male
  Weight: 74.1 kg

DRUGS (11)
  1. OXALIPLATIN [Suspect]
     Indication: SALIVARY GLAND CANCER
     Dosage: 182 MG Q 3 WK IV
     Route: 042
     Dates: start: 20060223
  2. CAPECITABINE [Suspect]
     Indication: SALIVARY GLAND CANCER
     Dosage: 2150 MG FIRST 14 DAYS OF EVERY 21 DAY CYCLE PO
     Route: 048
     Dates: start: 20060223, end: 20060308
  3. HYDROXYZINE [Concomitant]
  4. PAMOATE [Concomitant]
  5. LEVOFLOXACIN [Concomitant]
  6. FLUOXETINE HCL [Concomitant]
  7. LOMOTIL [Concomitant]
  8. RANITIDINE HCL SYRUP [Concomitant]
  9. REGLAN [Concomitant]
  10. RITALIN [Concomitant]
  11. ZYDIS [Concomitant]

REACTIONS (2)
  - ASPIRATION [None]
  - PNEUMONIA [None]
